FAERS Safety Report 14529991 (Version 1)
Quarter: 2018Q1

REPORT INFORMATION
  Report Type: Spontaneous
  Country: US (occurrence: US)
  Receive Date: 20180214
  Receipt Date: 20180214
  Transmission Date: 20180509
  Serious: Yes (Hospitalization, Disabling, Other)
  Sender: FDA-Public Use
  Company Number: US-ABBVIE-18P-163-2251646-00

PATIENT
  Sex: Male

DRUGS (2)
  1. GENGRAF [Suspect]
     Active Substance: CYCLOSPORINE
     Indication: PRODUCT USED FOR UNKNOWN INDICATION
     Dosage: PATIENT WAS ON PRODUCT FOR MULT. YEARS.
     Route: 048
  2. CYCLOSPORINE. [Concomitant]
     Active Substance: CYCLOSPORINE
     Indication: PRODUCT USED FOR UNKNOWN INDICATION

REACTIONS (4)
  - Joint injury [Unknown]
  - Pneumonia [Recovering/Resolving]
  - Chondrocalcinosis pyrophosphate [Recovering/Resolving]
  - Paraplegia [Recovering/Resolving]

NARRATIVE: CASE EVENT DATE: 2018
